FAERS Safety Report 4415392-7 (Version None)
Quarter: 2004Q2

REPORT INFORMATION
  Report Type: 
  Country: None (occurrence: None)
  Receive Date: 20040630
  Receipt Date: 20040217
  Transmission Date: 20050107
  Serious: Yes (Other)
  Sender: FDA-Public Use
  Company Number: 2003038326

PATIENT
  Age: 50 Year
  Sex: Female

DRUGS (9)
  1. ZOLOFT [Suspect]
     Indication: DEPRESSION
     Dosage: 250 MG, ORAL
     Route: 048
     Dates: start: 20020611, end: 20030822
  2. ARIPIPRAZOLE (ARIPIPRAZOLE) [Suspect]
     Indication: SCHIZOPHRENIA
     Dosage: 10 MG, ORAL
     Route: 048
     Dates: start: 20030728
  3. MIDAFINIL (MODAFINIL) [Concomitant]
  4. VALPROATE SODIUM [Concomitant]
  5. TIAGABINE HYDROCHLORIDE (TIAGABINE HYDROCHLORIDE) [Concomitant]
  6. OLANZAPINE [Concomitant]
  7. LORAZEPAM [Concomitant]
  8. GABAPENTIN [Concomitant]
  9. PHENYTOIN SODIUM [Concomitant]

REACTIONS (6)
  - CONVULSION [None]
  - DEPRESSED LEVEL OF CONSCIOUSNESS [None]
  - GAIT DISTURBANCE [None]
  - MEDICATION ERROR [None]
  - OVERDOSE [None]
  - SOMNOLENCE [None]
